FAERS Safety Report 25574739 (Version 1)
Quarter: 2025Q3

REPORT INFORMATION
  Report Type: Spontaneous
  Country: CN (occurrence: CN)
  Receive Date: 20250718
  Receipt Date: 20250718
  Transmission Date: 20251020
  Serious: Yes (Hospitalization, Other)
  Sender: NOVITIUM PHARMA
  Company Number: CN-NOVITIUMPHARMA-2025CNNVP01606

PATIENT
  Age: 61 Year
  Sex: Male

DRUGS (5)
  1. DEXAMETHASONE [Suspect]
     Active Substance: DEXAMETHASONE
     Indication: Mantle cell lymphoma
  2. RITUXIMAB [Concomitant]
     Active Substance: RITUXIMAB
     Indication: Mantle cell lymphoma
  3. CYCLOPHOSPHAMIDE [Concomitant]
     Active Substance: CYCLOPHOSPHAMIDE
     Indication: Mantle cell lymphoma
  4. EPIRUBICIN [Concomitant]
     Active Substance: EPIRUBICIN
     Indication: Mantle cell lymphoma
  5. VINDESINE [Concomitant]
     Active Substance: VINDESINE
     Indication: Mantle cell lymphoma

REACTIONS (2)
  - Whipple^s disease [Recovering/Resolving]
  - Pneumonia streptococcal [Recovering/Resolving]
